FAERS Safety Report 6209434-6 (Version None)
Quarter: 2009Q2

REPORT INFORMATION
  Report Type: 
  Country: None (occurrence: None)
  Receive Date: 20090601
  Receipt Date: 20090518
  Transmission Date: 20091009
  Serious: Yes (Hospitalization)
  Sender: FDA-Public Use
  Company Number: FR-ROCHE-615455

PATIENT
  Sex: Female
  Weight: 64 kg

DRUGS (9)
  1. TAMIFLU [Suspect]
     Indication: INFLUENZA
     Dosage: FREQUENCY: EVERY DAY (QD)
     Route: 048
     Dates: start: 20090120, end: 20090123
  2. INSULINE [Concomitant]
  3. METFORMIN HCL [Concomitant]
  4. AMLOR [Concomitant]
  5. ANGIOTENSIN CONVERTING ENZYME INHIBITOR [Concomitant]
  6. PLAVIX [Concomitant]
     Dosage: DRUG REPORTED: PLAVIX 75
  7. PRAZEPAM [Concomitant]
     Dosage: DRUG REPORTED: LYSANXIA 10
  8. GLUCOPHAGE [Concomitant]
     Dosage: DRUG REPORTED: GLUCOPHAGE 1000
  9. ACTIVIR [Concomitant]

REACTIONS (1)
  - ANURIA [None]
